FAERS Safety Report 4784974-5 (Version None)
Quarter: 2005Q3

REPORT INFORMATION
  Report Type: 
  Country: None (occurrence: None)
  Receive Date: 20050930
  Receipt Date: 20050921
  Transmission Date: 20060218
  Serious: Yes (Other)
  Sender: FDA-Public Use
  Company Number: 2005UW14380

PATIENT
  Age: 9 Year
  Sex: Female
  Weight: 25 kg

DRUGS (1)
  1. BUDECORT [Suspect]
     Indication: RHINITIS
     Route: 045
     Dates: start: 20050820

REACTIONS (2)
  - PHARYNGITIS [None]
  - SCARLET FEVER [None]
